FAERS Safety Report 8501198-6 (Version None)
Quarter: 2012Q3

REPORT INFORMATION
  Report Type: 
  Country: None (occurrence: None)
  Receive Date: 20120710
  Receipt Date: 20120703
  Transmission Date: 20120928
  Serious: Yes (Life-Threatening, Hospitalization, Other)
  Sender: FDA-Public Use
  Company Number: US-PFIZER INC-001-0981-M0201469

PATIENT
  Sex: Male

DRUGS (5)
  1. LOVENOX [Suspect]
     Route: 065
     Dates: end: 20010101
  2. ATORVASTATIN [Interacting]
     Indication: HYPERCHOLESTEROLAEMIA
     Dosage: DAILY
     Route: 048
     Dates: start: 20000907, end: 20011030
  3. ISONIAZID [Interacting]
     Indication: TUBERCULOSIS
     Dosage: DAILY
     Route: 065
     Dates: start: 20011016, end: 20011030
  4. METOPROLOL [Concomitant]
     Route: 065
  5. HYTRIN [Concomitant]
     Route: 065

REACTIONS (16)
  - HAEMATOCHEZIA [None]
  - CORONARY ARTERY DISEASE [None]
  - AORTIC ANEURYSM [None]
  - EXCORIATION [None]
  - BLOOD GLUCOSE INCREASED [None]
  - CARDIAC FAILURE CONGESTIVE [None]
  - ACUTE CORONARY SYNDROME [None]
  - TUBERCULOSIS [None]
  - SYNCOPE [None]
  - ORAL CANDIDIASIS [None]
  - ATRIAL FLUTTER [None]
  - DEHYDRATION [None]
  - DRUG INTERACTION [None]
  - HYPOXIA [None]
  - STRESS [None]
  - RHABDOMYOLYSIS [None]
